FAERS Safety Report 5190519-0 (Version None)
Quarter: 2006Q4

REPORT INFORMATION
  Report Type: 
  Country: None (occurrence: None)
  Receive Date: 20061222
  Receipt Date: 20061115
  Transmission Date: 20070319
  Serious: Yes (Death, Hospitalization)
  Sender: FDA-Public Use
  Company Number: DE-GLAXOSMITHKLINE-D0051483A

PATIENT
  Age: 75 Year
  Sex: Female
  Weight: 300 kg

DRUGS (7)
  1. ARIXTRA [Suspect]
     Indication: VENOUS THROMBOSIS
     Dosage: 7.5MG PER DAY
     Route: 065
     Dates: start: 20060315, end: 20060320
  2. DELIX [Concomitant]
     Route: 065
  3. MONO MACK [Concomitant]
     Route: 065
  4. ALLOPURINOL [Concomitant]
     Route: 065
  5. DIURAPID [Concomitant]
     Route: 065
  6. ATORVASTATIN CALCIUM [Concomitant]
     Route: 065
  7. ACTRAPHANE [Concomitant]
     Route: 065

REACTIONS (3)
  - HAEMATOMA [None]
  - INJECTION SITE HAEMATOMA [None]
  - SEPSIS [None]
